FAERS Safety Report 9153524 (Version 1)
Quarter: 2013Q1

REPORT INFORMATION
  Report Type: Spontaneous
  Country: US (occurrence: None)
  Receive Date: 20130306
  Receipt Date: 20130306
  Transmission Date: 20140127
  Serious: Yes (Hospitalization)
  Sender: FDA-Public Use
  Company Number: None

PATIENT
  Sex: Male
  Weight: 32.6 kg

DRUGS (6)
  1. CYCLOPHOSPHAMIDE [Suspect]
  2. CYTARABINE [Suspect]
  3. MERCAPTOPURINE [Suspect]
  4. METHOTREXATE [Suspect]
  5. ONCASPAR [Suspect]
  6. VINCRISTINE SULFATE [Suspect]

REACTIONS (12)
  - Pyrexia [None]
  - Headache [None]
  - Neutropenia [None]
  - Vomiting [None]
  - Abdominal pain [None]
  - Pancreatitis necrotising [None]
  - Renal failure [None]
  - Coagulopathy [None]
  - Prothrombin time prolonged [None]
  - Hyperfibrinogenaemia [None]
  - Ascites [None]
  - Pleural effusion [None]
